FAERS Safety Report 4542249-3 (Version None)
Quarter: 2004Q4

REPORT INFORMATION
  Report Type: 
  Country: None (occurrence: None)
  Receive Date: 20041227
  Receipt Date: 20041018
  Transmission Date: 20050328
  Serious: Yes (Death)
  Sender: FDA-Public Use
  Company Number: ACO_0011_2004

PATIENT
  Age: 39 Year

DRUGS (2)
  1. TIZANIDINE HYDROCHLORIDE [Suspect]
  2. PAROXETINE HCL [Suspect]

REACTIONS (2)
  - COMPLETED SUICIDE [None]
  - OVERDOSE [None]
